FAERS Safety Report 22520683 (Version 1)
Quarter: 2023Q2

REPORT INFORMATION
  Report Type: Spontaneous
  Country: US (occurrence: None)
  Receive Date: 20230604
  Receipt Date: 20230604
  Transmission Date: 20230721
  Serious: Yes (Other)
  Sender: FDA-Public Use
  Company Number: None

PATIENT
  Age: 68 Year
  Sex: Female
  Weight: 78.75 kg

DRUGS (3)
  1. TIZANIDINE [Suspect]
     Active Substance: TIZANIDINE
     Indication: Back pain
     Dosage: FREQUENCY : AS NEEDED;?
     Route: 048
     Dates: start: 20230318, end: 20230318
  2. LOSARTAN [Concomitant]
     Active Substance: LOSARTAN
  3. Low-dose levothyroxine [Concomitant]

REACTIONS (2)
  - Loss of consciousness [None]
  - Blood pressure decreased [None]

NARRATIVE: CASE EVENT DATE: 20230318
